FAERS Safety Report 13502602 (Version 1)
Quarter: 2017Q2

REPORT INFORMATION
  Report Type: Spontaneous
  Country: US (occurrence: US)
  Receive Date: 20170501
  Receipt Date: 20170501
  Transmission Date: 20170830
  Serious: Yes (Hospitalization)
  Sender: FDA-Public Use
  Company Number: None

PATIENT
  Age: 61 Year
  Sex: Female
  Weight: 49 kg

DRUGS (5)
  1. WARFARIN [Concomitant]
     Active Substance: WARFARIN
  2. PANTOPRAZOLE [Concomitant]
     Active Substance: PANTOPRAZOLE
  3. FUROSEMIDE. [Concomitant]
     Active Substance: FUROSEMIDE
  4. LACTOBACILLUS ACIDOPHILUS (BACID) [Concomitant]
  5. NAFCILLIN [Suspect]
     Active Substance: NAFCILLIN\NAFCILLIN SODIUM
     Indication: STAPHYLOCOCCAL BACTERAEMIA
     Dosage: OTHER FREQUENCY:6 TIMES PER DAY;?
     Route: 041
     Dates: start: 20160825, end: 20160915

REACTIONS (3)
  - Neutropenia [None]
  - Throat irritation [None]
  - Therapy cessation [None]

NARRATIVE: CASE EVENT DATE: 20160915
